FAERS Safety Report 23831712 (Version 1)
Quarter: 2024Q2

REPORT INFORMATION
  Report Type: Spontaneous
  Country: CN (occurrence: CN)
  Receive Date: 20240508
  Receipt Date: 20240508
  Transmission Date: 20240716
  Serious: Yes (Other)
  Sender: FDA-Public Use
  Company Number: None

PATIENT
  Age: 42 Year
  Sex: Female
  Weight: 77 kg

DRUGS (5)
  1. CYCLOPHOSPHAMIDE [Suspect]
     Active Substance: CYCLOPHOSPHAMIDE
     Indication: Breast cancer female
     Dosage: 1.1 G, ONE TIME IN ONE DAY, DILUTED WITH 50 ML OF 0.9% SODIUM CHLORIDE, D1
     Route: 041
     Dates: start: 20240406, end: 20240406
  2. SODIUM CHLORIDE [Suspect]
     Active Substance: SODIUM CHLORIDE
     Indication: Medication dilution
     Dosage: 0.9% 50 ML, ONE TIME IN ONE DAY, USED TO DILUTE 1.1 G OF CYCLOPHOSPHAMIDE, D1
     Route: 041
     Dates: start: 20240406, end: 20240406
  3. SODIUM CHLORIDE [Suspect]
     Active Substance: SODIUM CHLORIDE
     Dosage: 0.9% 100 ML, ONE TIME IN ONE DAY, USED TO DILUTE 135 MG OF EPIRUBICIN HYDROCHLORIDE COMBINED WITH 50
     Route: 041
     Dates: start: 20240406, end: 20240406
  4. EPIRUBICIN HYDROCHLORIDE [Suspect]
     Active Substance: EPIRUBICIN HYDROCHLORIDE
     Indication: Breast cancer female
     Dosage: 135 MG, ONE TIME IN ONE DAY, DILUTED WITH 100 ML OF 0.9% SODIUM CHLORIDE COMBINED WITH 50 ML OF SOLV
     Route: 041
     Dates: start: 20240406, end: 20240406
  5. STERILE WATER [Suspect]
     Active Substance: WATER
     Indication: Medication dilution
     Dosage: 50 ML, ONE TIME IN ONE DAY, USED TO DILUTE 135 MG OF EPIRUBICIN HYDROCHLORIDE COMBINED WITH 100 ML O
     Route: 041
     Dates: start: 20240406, end: 20240406

REACTIONS (2)
  - Myelosuppression [Recovered/Resolved]
  - Leukopenia [Recovered/Resolved]

NARRATIVE: CASE EVENT DATE: 20240426
